FAERS Safety Report 4790046-6 (Version None)
Quarter: 2005Q4

REPORT INFORMATION
  Report Type: 
  Country: None (occurrence: None)
  Receive Date: 20051006
  Receipt Date: 20050927
  Transmission Date: 20060501
  Serious: Yes (Other)
  Sender: FDA-Public Use
  Company Number: FI-JNJFOC-20050903134

PATIENT
  Sex: Female

DRUGS (10)
  1. RISPERDAL [Suspect]
     Route: 048
  2. RISPERDAL [Suspect]
     Indication: FEAR
     Dosage: 0.25MG AND 0.5MG
     Route: 048
  3. RISPERDAL [Suspect]
     Indication: ANXIETY
     Route: 048
  4. LYRICA [Suspect]
     Indication: NEURALGIA
     Route: 048
  5. FURESIS [Concomitant]
     Route: 048
  6. FOSAMAX [Concomitant]
     Route: 048
  7. EMCONCOR [Concomitant]
     Route: 048
  8. CALCICHEW-D3 FORTE [Concomitant]
     Route: 048
  9. CALCICHEW-D3 FORTE [Concomitant]
     Route: 048
  10. MAREVAN FORTE [Concomitant]
     Route: 048

REACTIONS (2)
  - DEPRESSED LEVEL OF CONSCIOUSNESS [None]
  - SOMNOLENCE [None]
